FAERS Safety Report 7784364-7 (Version None)
Quarter: 2011Q3

REPORT INFORMATION
  Report Type: 
  Country: None (occurrence: None)
  Receive Date: 20110928
  Receipt Date: 20110922
  Transmission Date: 20111222
  Serious: Yes (Hospitalization, Other)
  Sender: FDA-Public Use
  Company Number: PHEH2011US04874

PATIENT
  Sex: Male

DRUGS (3)
  1. EXJADE [Suspect]
     Dosage: 1625 MG (ONE 125MG TABLET AND THREE 500MG TABLETS), QD
     Route: 048
  2. METOPROLOL TARTRATE [Suspect]
     Dosage: 25 MG, QD
     Route: 048
  3. CHEMOTHERAPEUTICS NOS [Concomitant]
     Dosage: UNK UKN, UNK

REACTIONS (3)
  - ATRIAL FIBRILLATION [None]
  - CARDIAC FAILURE CONGESTIVE [None]
  - DIARRHOEA [None]
